FAERS Safety Report 6555142-1 (Version None)
Quarter: 2010Q1

REPORT INFORMATION
  Report Type: 
  Country: None (occurrence: None)
  Receive Date: 20100128
  Receipt Date: 20100115
  Transmission Date: 20100710
  Serious: Yes (Other)
  Sender: FDA-Public Use
  Company Number: GB-RANBAXY-2009RR-30230

PATIENT
  Age: 9 Year
  Sex: Female

DRUGS (3)
  1. TOPIRAMATE [Suspect]
     Indication: CONVULSION
     Dosage: 0.5 MG/KG, QD
     Route: 065
  2. TOPIRAMATE [Suspect]
     Indication: COMPLEX PARTIAL SEIZURES
     Dosage: 9 MG/KG, UNK
     Route: 065
  3. LEVETIRACETAM [Concomitant]

REACTIONS (2)
  - ALLODYNIA [None]
  - CONVULSION [None]
